FAERS Safety Report 10336523 (Version 1)
Quarter: 2014Q3

REPORT INFORMATION
  Report Type: Spontaneous
  Country: US (occurrence: US)
  Receive Date: 20140723
  Receipt Date: 20140723
  Transmission Date: 20150326
  Serious: Yes (Hospitalization, Other)
  Sender: FDA-Public Use
  Company Number: US-BRISTOL-MYERS SQUIBB COMPANY-20739975

PATIENT
  Age: 88 Year
  Sex: Male
  Weight: 74.83 kg

DRUGS (2)
  1. COUMADIN [Suspect]
     Active Substance: WARFARIN SODIUM
  2. AZITHROMYCIN [Suspect]
     Active Substance: AZITHROMYCIN ANHYDROUS
     Indication: PHARYNGITIS
     Dates: start: 20140509

REACTIONS (2)
  - International normalised ratio increased [Unknown]
  - Blood urine present [Unknown]

NARRATIVE: CASE EVENT DATE: 201405
